FAERS Safety Report 6428609-4 (Version None)
Quarter: 2009Q4

REPORT INFORMATION
  Report Type: 
  Country: None (occurrence: None)
  Receive Date: 20091105
  Receipt Date: 20091024
  Transmission Date: 20100525
  Serious: Yes (Death)
  Sender: FDA-Public Use
  Company Number: IN-PFIZER INC-2009287989

PATIENT
  Age: 65 Year
  Sex: Female

DRUGS (2)
  1. SUTENT [Suspect]
     Indication: METASTATIC RENAL CELL CARCINOMA
     Dosage: 37.5 MG, 1X/DAY
     Route: 048
  2. FESOVIT [Concomitant]
     Dosage: 1 TABLET DAILY X 3 MONTHS

REACTIONS (1)
  - DEATH [None]
